FAERS Safety Report 18783107 (Version 2)
Quarter: 2021Q1

REPORT INFORMATION
  Report Type: Report from Study
  Country: BR (occurrence: BR)
  Receive Date: 20210125
  Receipt Date: 20210215
  Transmission Date: 20210419
  Serious: Yes (Other)
  Sender: FDA-Public Use
  Company Number: BR-JNJFOC-20210133462

PATIENT
  Sex: Male

DRUGS (2)
  1. STELARA [Suspect]
     Active Substance: USTEKINUMAB
  2. STELARA [Suspect]
     Active Substance: USTEKINUMAB
     Indication: PSORIASIS
     Dosage: AT WEEKS 0, 4 AND EVERY 12 WEEKS
     Route: 058
     Dates: start: 20150805

REACTIONS (2)
  - Dementia Alzheimer^s type [Unknown]
  - Parkinson^s disease [Unknown]
